FAERS Safety Report 21436749 (Version 3)
Quarter: 2023Q1

REPORT INFORMATION
  Report Type: Spontaneous
  Country: CA (occurrence: CA)
  Receive Date: 20221010
  Receipt Date: 20230127
  Transmission Date: 20230418
  Serious: Yes (Other)
  Sender: FDA-Public Use
  Company Number: CA-PFIZER INC-202201155556

PATIENT
  Age: 79 Year
  Sex: Female

DRUGS (4)
  1. ADALIMUMAB [Suspect]
     Active Substance: ADALIMUMAB
     Dosage: 1 DF
     Route: 058
     Dates: start: 2021, end: 2022
  2. VITAMIN D NOS [Concomitant]
     Active Substance: VITAMIN D NOS
     Dosage: 1 DF
  3. AMLODIPINE [Concomitant]
     Active Substance: AMLODIPINE BESYLATE
     Dosage: 1 DF
  4. VENOFER [Concomitant]
     Active Substance: IRON SUCROSE
     Dosage: 1 DF, EVERY 2 MONTHS
     Route: 042

REACTIONS (6)
  - Lung cancer metastatic [Unknown]
  - Spinal fracture [Unknown]
  - Movement disorder [Unknown]
  - Anorectal discomfort [Unknown]
  - Vulvovaginal burning sensation [Unknown]
  - Abdominal pain [Unknown]
